FAERS Safety Report 21799080 (Version 1)
Quarter: 2022Q4

REPORT INFORMATION
  Report Type: Spontaneous
  Country: US (occurrence: None)
  Receive Date: 20221229
  Receipt Date: 20221229
  Transmission Date: 20230113
  Serious: Yes (Other)
  Sender: FDA-Public Use
  Company Number: None

PATIENT
  Age: 75 Year
  Sex: Male

DRUGS (2)
  1. CARDIZEM [Suspect]
     Active Substance: DILTIAZEM HYDROCHLORIDE
  2. DEVICE [Suspect]
     Active Substance: DEVICE

REACTIONS (2)
  - Incorrect drug administration rate [None]
  - Device delivery system issue [None]

NARRATIVE: CASE EVENT DATE: 20221222
